FAERS Safety Report 6534638-2 (Version None)
Quarter: 2010Q1

REPORT INFORMATION
  Report Type: 
  Country: None (occurrence: None)
  Receive Date: 20100112
  Receipt Date: 20100107
  Transmission Date: 20100710
  Serious: Yes (Other)
  Sender: FDA-Public Use
  Company Number: B0623981A

PATIENT
  Age: 49 Year
  Sex: Male
  Weight: 116 kg

DRUGS (9)
  1. ORLISTAT [Suspect]
     Indication: HEPATIC STEATOSIS
     Dates: start: 20090806, end: 20091001
  2. FLUTICASONE PROPIONATE [Concomitant]
     Dates: start: 20050114
  3. CETIRIZINE HYDROCHLORIDE [Concomitant]
     Dates: start: 20050114
  4. LEVOTHYROXINE SODIUM [Concomitant]
     Dates: start: 20070427
  5. BETAMETHASONE VALERATE [Concomitant]
     Dates: start: 20070606
  6. PERINDOPRIL ERBUMINE [Concomitant]
     Dates: start: 20071122
  7. LEVOTHYROXINE SODIUM [Concomitant]
     Dates: start: 20071128
  8. METFORMIN HYDROCHLORIDE [Concomitant]
     Dates: start: 20091127
  9. METFORMIN HYDROCHLORIDE [Concomitant]
     Dates: end: 20091105

REACTIONS (4)
  - BLOOD THYROID STIMULATING HORMONE INCREASED [None]
  - LABORATORY TEST ABNORMAL [None]
  - THYROID FUNCTION TEST ABNORMAL [None]
  - THYROXINE FREE DECREASED [None]
